FAERS Safety Report 10501215 (Version 1)
Quarter: 2014Q4

REPORT INFORMATION
  Report Type: Spontaneous
  Country: US (occurrence: None)
  Receive Date: 20141006
  Receipt Date: 20141006
  Transmission Date: 20150528
  Serious: Yes (Life-Threatening, Hospitalization)
  Sender: FDA-Public Use
  Company Number: None

PATIENT
  Age: 65 Year
  Sex: Male
  Weight: 113.5 kg

DRUGS (2)
  1. SERTRALINE [Suspect]
     Active Substance: SERTRALINE HYDROCHLORIDE
     Indication: BIPOLAR I DISORDER
     Dosage: 100 MG EVERY DAY PO?~04/16/2013 THRU N/A
     Route: 048
     Dates: start: 20130416
  2. METOLAZONE. [Suspect]
     Active Substance: METOLAZONE
     Indication: CARDIAC FAILURE CONGESTIVE
     Route: 048
     Dates: start: 20140418, end: 20140424

REACTIONS (11)
  - Pulmonary oedema [None]
  - Hyponatraemia [None]
  - Wheezing [None]
  - Fall [None]
  - Hypovolaemia [None]
  - Dyspnoea [None]
  - Dry mouth [None]
  - Confusional state [None]
  - Dysarthria [None]
  - Gait disturbance [None]
  - Oedema peripheral [None]

NARRATIVE: CASE EVENT DATE: 20140424
